FAERS Safety Report 21379020 (Version 1)
Quarter: 2022Q3

REPORT INFORMATION
  Report Type: Spontaneous
  Country: CN (occurrence: CN)
  Receive Date: 20220927
  Receipt Date: 20220927
  Transmission Date: 20221027
  Serious: Yes (Hospitalization)
  Sender: FDA-Public Use
  Company Number: CN-CELGENE-CHN-20200307748

PATIENT
  Age: 62 Year
  Sex: Male
  Weight: 73 kg

DRUGS (14)
  1. ABRAXANE [Suspect]
     Active Substance: PACLITAXEL
     Indication: Squamous cell carcinoma of lung
     Dosage: FREQUENCY TEXT: DAY 1,8,15?189 MILLIGRAM
     Route: 041
     Dates: start: 20191115, end: 20200305
  2. CARBOPLATIN [Suspect]
     Active Substance: CARBOPLATIN
     Indication: Squamous cell carcinoma of lung
     Dosage: FREQUENCY TEXT: DAY 1 OF EACH CYCLE?26.8095 MILLIGRAM
     Route: 041
     Dates: start: 20191115, end: 20200220
  3. SERPLULIMAB [Suspect]
     Active Substance: SERPLULIMAB
     Indication: Squamous cell carcinoma of lung
     Dosage: 315 MILLIGRAM
     Route: 041
     Dates: start: 20191115, end: 20200220
  4. SERPLULIMAB [Suspect]
     Active Substance: SERPLULIMAB
     Dosage: 315 MILLIGRAM
     Route: 041
     Dates: start: 20200320
  5. TROPISETRON HYDROCHLORIDE [Concomitant]
     Active Substance: TROPISETRON HYDROCHLORIDE
     Indication: Vomiting
     Dosage: FREQUENCY TEXT: QD?5 MILLIGRAM
     Route: 048
     Dates: start: 20200227, end: 20200227
  6. METOCLOPRAMIDE HYDROCHLORIDE [Concomitant]
     Active Substance: METOCLOPRAMIDE HYDROCHLORIDE
     Indication: Vomiting
     Dosage: FREQUENCY TEXT: QD?10 MILLIGRAM
     Route: 030
     Dates: start: 20200227, end: 20200227
  7. DIPHENHYDRAMINE HYDROCHLORIDE [Concomitant]
     Active Substance: DIPHENHYDRAMINE HYDROCHLORIDE
     Indication: Hypersensitivity
     Dosage: FREQUENCY TEXT: QD?20 MILLIGRAM
     Route: 030
     Dates: start: 20200227, end: 20200227
  8. CIMETIDINE [Concomitant]
     Active Substance: CIMETIDINE
     Indication: Prophylaxis
     Dosage: FREQUENCY TEXT: QD?.4 GRAM
     Route: 041
     Dates: start: 20200227
  9. VITAMIN C [Concomitant]
     Active Substance: ASCORBIC ACID
     Indication: Nutritional supplementation
     Dosage: FREQUENCY TEXT: QD?1 GRAM
     Route: 042
     Dates: start: 20200227, end: 20200305
  10. VITAMIN B6 [Concomitant]
     Active Substance: PYRIDOXINE HYDROCHLORIDE
     Indication: Nutritional supplementation
     Dosage: FREQUENCY TEXT: QD?.1 GRAM
     Route: 042
     Dates: start: 20200227, end: 20200305
  11. PEGYLATED RECOMBINANT HUMAN GRANULOCYTE COLONY-STIMULATING FACTOR [Concomitant]
     Indication: Neutrophil count decreased
     Dosage: FREQUENCY TEXT: QD?200 MICROGRAM
     Route: 058
     Dates: start: 20200309, end: 20200314
  12. PEGYLATED RECOMBINANT HUMAN GRANULOCYTE COLONY-STIMULATING FACTOR [Concomitant]
     Indication: White blood cell count decreased
  13. HERBALS\DIAMMONIUM GLYCYRRHIZINATE [Concomitant]
     Active Substance: HERBALS\DIAMMONIUM GLYCYRRHIZINATE
     Indication: Prophylaxis
     Dosage: 150 MILLIGRAM
     Route: 048
     Dates: start: 20200323, end: 20200330
  14. HERBALS\DIAMMONIUM GLYCYRRHIZINATE [Concomitant]
     Active Substance: HERBALS\DIAMMONIUM GLYCYRRHIZINATE
     Dosage: 300 MILLIGRAM
     Route: 048

REACTIONS (1)
  - Hepatic function abnormal [Recovered/Resolved]

NARRATIVE: CASE EVENT DATE: 20200312
